FAERS Safety Report 16970381 (Version 1)
Quarter: 2019Q4

REPORT INFORMATION
  Report Type: Spontaneous
  Country: US (occurrence: US)
  Receive Date: 20190912
  Receipt Date: 20190912
  Transmission Date: 20200122
  Serious: No
  Sender: FDA-Public Use
  Company Number: None

PATIENT

DRUGS (1)
  1. GILENYA [Suspect]
     Active Substance: FINGOLIMOD HYDROCHLORIDE
     Indication: MULTIPLE SCLEROSIS
     Route: 048
     Dates: start: 20181207

REACTIONS (7)
  - Dysphonia [None]
  - Impaired healing [None]
  - Rash [None]
  - Pain [None]
  - Pruritus [None]
  - Agitation [None]
  - Vision blurred [None]

NARRATIVE: CASE EVENT DATE: 201907
